FAERS Safety Report 12547620 (Version 1)
Quarter: 2016Q3

REPORT INFORMATION
  Report Type: Spontaneous
  Country: US (occurrence: US)
  Receive Date: 20160712
  Receipt Date: 20160712
  Transmission Date: 20161109
  Serious: No
  Sender: FDA-Public Use
  Company Number: US-AMGEN-USASP2016089440

PATIENT
  Age: 54 Year
  Sex: Male

DRUGS (10)
  1. GLUCOSAMINE + CHONDROITIN [Concomitant]
     Dosage: UNK
  2. POTASSIUM [Concomitant]
     Active Substance: POTASSIUM
     Dosage: UNK
  3. ENBREL [Suspect]
     Active Substance: ETANERCEPT
     Indication: RHEUMATOID ARTHRITIS
     Dosage: 50 MG, QWK
     Route: 058
     Dates: start: 201512, end: 201606
  4. PREDNISONE. [Concomitant]
     Active Substance: PREDNISONE
     Dosage: UNK
  5. HYDROCODONE [Concomitant]
     Active Substance: HYDROCODONE
     Dosage: UNK
  6. MVI [Concomitant]
     Active Substance: VITAMINS
     Dosage: UNK
  7. SULFAZINE [Concomitant]
     Active Substance: SULFASALAZINE
     Dosage: UNK
  8. VITAMIN D [Concomitant]
     Active Substance: CHOLECALCIFEROL
     Dosage: UNK
  9. FISH OIL [Concomitant]
     Active Substance: FISH OIL
     Dosage: UNK
  10. MAGNESIUM [Concomitant]
     Active Substance: MAGNESIUM
     Dosage: UNK

REACTIONS (2)
  - Pain [Unknown]
  - Drug effect decreased [Unknown]
